FAERS Safety Report 5337379-2 (Version None)
Quarter: 2007Q2

REPORT INFORMATION
  Report Type: 
  Country: None (occurrence: None)
  Receive Date: 20070529
  Receipt Date: 20070517
  Transmission Date: 20071010
  Serious: Yes (Life-Threatening, Hospitalization)
  Sender: FDA-Public Use
  Company Number: US-AMGEN-US183699

PATIENT
  Sex: Female

DRUGS (35)
  1. PANITUMUMAB [Suspect]
     Indication: COLORECTAL CANCER
     Route: 042
     Dates: start: 20060328
  2. IRINOTECAN HCL [Suspect]
     Route: 042
  3. FLUOROURACIL [Suspect]
     Route: 042
  4. AVASTIN [Concomitant]
     Route: 042
  5. FOLINIC ACID [Concomitant]
     Route: 042
  6. METFORMIN HCL [Concomitant]
     Route: 048
     Dates: start: 20040101
  7. STARLIX [Concomitant]
     Route: 048
     Dates: start: 20060201
  8. GLYBURIDE [Concomitant]
     Route: 048
     Dates: start: 19960101
  9. LYRICA [Concomitant]
     Route: 048
     Dates: start: 20050101
  10. HYDROCODONE BITARTRATE [Concomitant]
     Route: 048
     Dates: start: 19950101
  11. APAP TAB [Concomitant]
     Route: 048
     Dates: start: 19950101
  12. FERROUS SULFATE [Concomitant]
     Route: 048
     Dates: start: 20051201
  13. ASCORBIC ACID [Concomitant]
     Route: 048
     Dates: start: 20051201
  14. FOLIC ACID [Concomitant]
     Route: 048
     Dates: start: 20050501
  15. GLUCOSAMINE [Concomitant]
     Route: 048
  16. CHONDROITIN [Concomitant]
     Route: 048
  17. PROVEXCV [Concomitant]
     Route: 048
     Dates: start: 20010101
  18. COSOPT [Concomitant]
     Route: 047
     Dates: start: 20040101
  19. XALATAN [Concomitant]
     Route: 047
     Dates: start: 20040101
  20. CORTISPORIN [Concomitant]
     Route: 061
     Dates: start: 20060405
  21. ARANESP [Concomitant]
     Route: 065
  22. ALOXI [Concomitant]
     Route: 042
     Dates: start: 20060328
  23. DEXAMETHASONE [Concomitant]
     Route: 042
     Dates: start: 20060328
  24. BENADRYL [Concomitant]
     Route: 042
     Dates: start: 20060328
  25. COMPAZINE [Concomitant]
     Route: 065
     Dates: start: 20060328
  26. IMODIUM [Concomitant]
     Route: 065
     Dates: start: 20060328
  27. PREVACID [Concomitant]
     Route: 048
     Dates: start: 20060501
  28. NEULASTA [Concomitant]
     Route: 058
     Dates: start: 20060330
  29. MELA-CAL [Concomitant]
     Route: 048
     Dates: start: 20010101
  30. HEPARIN [Concomitant]
     Route: 042
     Dates: start: 20060328
  31. TYLENOL [Concomitant]
     Route: 048
     Dates: start: 20060328
  32. ZINC [Concomitant]
     Route: 065
     Dates: start: 20060509
  33. FENTANYL [Concomitant]
     Route: 042
     Dates: start: 20060523
  34. CELL-WISE [Concomitant]
     Route: 048
     Dates: start: 20010101
  35. MEL-VITA [Concomitant]
     Route: 048
     Dates: start: 20010101

REACTIONS (2)
  - HYPERGLYCAEMIA [None]
  - VOMITING [None]
